FAERS Safety Report 12798086 (Version 1)
Quarter: 2016Q3

REPORT INFORMATION
  Report Type: Report from Study
  Country: US (occurrence: US)
  Receive Date: 20160930
  Receipt Date: 20160930
  Transmission Date: 20161109
  Serious: Yes (Hospitalization, Other)
  Sender: FDA-Public Use
  Company Number: US-ROCHE-1069698

PATIENT
  Age: 61 Year
  Sex: Female
  Weight: 57.4 kg

DRUGS (10)
  1. FOSBRETABULIN TROMETHAMINE [Suspect]
     Active Substance: FOSBRETABULIN TROMETHAMINE
     Route: 042
     Dates: start: 20120201
  2. FOSBRETABULIN TROMETHAMINE [Suspect]
     Active Substance: FOSBRETABULIN TROMETHAMINE
     Route: 042
     Dates: start: 20120313
  3. BEVACIZUMAB [Suspect]
     Active Substance: BEVACIZUMAB
     Route: 042
     Dates: start: 20120201
  4. BEVACIZUMAB [Suspect]
     Active Substance: BEVACIZUMAB
     Route: 042
     Dates: start: 20120221
  5. BEVACIZUMAB [Suspect]
     Active Substance: BEVACIZUMAB
     Route: 042
     Dates: start: 20120404
  6. FOSBRETABULIN TROMETHAMINE [Suspect]
     Active Substance: FOSBRETABULIN TROMETHAMINE
     Indication: OVARIAN EPITHELIAL CANCER
     Route: 042
     Dates: start: 20120111
  7. FOSBRETABULIN TROMETHAMINE [Suspect]
     Active Substance: FOSBRETABULIN TROMETHAMINE
     Route: 042
     Dates: start: 20120221
  8. BEVACIZUMAB [Suspect]
     Active Substance: BEVACIZUMAB
     Route: 042
     Dates: start: 20120313
  9. BEVACIZUMAB [Suspect]
     Active Substance: BEVACIZUMAB
     Indication: OVARIAN EPITHELIAL CANCER
     Route: 042
     Dates: start: 20120111
  10. FOSBRETABULIN TROMETHAMINE [Suspect]
     Active Substance: FOSBRETABULIN TROMETHAMINE
     Route: 042
     Dates: start: 20120404

REACTIONS (7)
  - Electrocardiogram QT prolonged [Unknown]
  - Nausea [Unknown]
  - Dehydration [Unknown]
  - Small intestinal obstruction [Unknown]
  - Blood bilirubin increased [Unknown]
  - Cholecystitis [Unknown]
  - Ascites [Unknown]

NARRATIVE: CASE EVENT DATE: 20120410
